FAERS Safety Report 19376150 (Version 2)
Quarter: 2021Q3

REPORT INFORMATION
  Report Type: Report from Study
  Country: US (occurrence: US)
  Receive Date: 20210604
  Receipt Date: 20210820
  Transmission Date: 20211014
  Serious: No
  Sender: FDA-Public Use
  Company Number: US-JAZZ-2021-US-009793

PATIENT
  Age: 55 Year
  Sex: Female

DRUGS (1)
  1. XYWAV [Suspect]
     Active Substance: CALCIUM OXYBATE\MAGNESIUM OXYBATE\POTASSIUM OXYBATE\SODIUM OXYBATE
     Indication: NARCOLEPSY
     Dosage: 3.75 GRAM, TID
     Route: 048
     Dates: start: 202104

REACTIONS (1)
  - Skin cosmetic procedure [Unknown]

NARRATIVE: CASE EVENT DATE: 20210526
